FAERS Safety Report 8271515-3 (Version None)
Quarter: 2012Q2

REPORT INFORMATION
  Report Type: 
  Country: None (occurrence: None)
  Receive Date: 20120410
  Receipt Date: 20120402
  Transmission Date: 20120825
  Serious: Yes (Hospitalization)
  Sender: FDA-Public Use
  Company Number: NL-TEVA-331736ISR

PATIENT
  Age: 23 Year
  Sex: Female

DRUGS (2)
  1. MESALAMINE [Suspect]
     Indication: CROHN'S DISEASE
     Route: 065
  2. BUDESONIDE [Suspect]
     Indication: CROHN'S DISEASE
     Route: 065

REACTIONS (1)
  - PANCREATITIS ACUTE [None]
